FAERS Safety Report 6383874-7 (Version None)
Quarter: 2009Q4

REPORT INFORMATION
  Report Type: 
  Country: None (occurrence: None)
  Receive Date: 20091001
  Receipt Date: 20090817
  Transmission Date: 20100525
  Serious: No
  Sender: FDA-Public Use
  Company Number: US-BAYER-200913794BCC

PATIENT
  Sex: Female

DRUGS (2)
  1. EXTRA STRENGTH MIDOL [Suspect]
     Indication: DYSMENORRHOEA
     Route: 048
  2. BAYER ASPIRIN QUICK RELEASE CRYSTALS [Concomitant]
     Route: 048

REACTIONS (1)
  - DYSMENORRHOEA [None]
